FAERS Safety Report 5118359-9 (Version None)
Quarter: 2006Q4

REPORT INFORMATION
  Report Type: 
  Country: None (occurrence: None)
  Receive Date: 20061002
  Receipt Date: 20060808
  Transmission Date: 20070319
  Serious: Yes (Hospitalization)
  Sender: FDA-Public Use
  Company Number: PHMT2006CA01660

PATIENT
  Age: 23 Year
  Sex: Male

DRUGS (1)
  1. CLOZARIL [Suspect]
     Indication: SCHIZOPHRENIA
     Dosage: 200 MG, QHS
     Route: 048
     Dates: start: 20060707, end: 20060728

REACTIONS (8)
  - ACCIDENTAL OVERDOSE [None]
  - EOSINOPHIL COUNT INCREASED [None]
  - HEAT EXHAUSTION [None]
  - HYPERSENSITIVITY [None]
  - HYPERTHERMIA [None]
  - ORTHOSTATIC HYPOTENSION [None]
  - SYNCOPE [None]
  - WHITE BLOOD CELL COUNT INCREASED [None]
